FAERS Safety Report 22311438 (Version 4)
Quarter: 2023Q4

REPORT INFORMATION
  Report Type: Spontaneous
  Country: US (occurrence: US)
  Receive Date: 20230511
  Receipt Date: 20231109
  Transmission Date: 20240110
  Serious: Yes (Other)
  Sender: FDA-Public Use
  Company Number: US-BRISTOL-MYERS SQUIBB COMPANY-2023-067123

PATIENT
  Age: 64 Year
  Sex: Female

DRUGS (80)
  1. POMALYST [Suspect]
     Active Substance: POMALIDOMIDE
     Indication: Plasma cell myeloma
     Dosage: FREQ: EVERY DAY FOR 21 DAYS OF A 28 DAY CYCLE
     Route: 048
     Dates: start: 20230405
  2. POMALYST [Suspect]
     Active Substance: POMALIDOMIDE
     Dates: start: 20230505
  3. POMALYST [Suspect]
     Active Substance: POMALIDOMIDE
     Dosage: TAKE 1 CAPSULE BY MOUTH EVERY DAY FOR 21 DAYS SWALLOW WHOLE WITH WATER, DO NOT BREAK, CHEW OR OPEN C
     Route: 048
     Dates: start: 20230627, end: 20230718
  4. POMALYST [Suspect]
     Active Substance: POMALIDOMIDE
     Dosage: TAKE ONE CAPSULE BY MOUTH EVERY DAY FOR 21 DAYS ON AND 7 DAYS OFF
     Route: 048
     Dates: start: 20230912
  5. POMALYST [Suspect]
     Active Substance: POMALIDOMIDE
     Dosage: TAKE 1 CAPSULE BY MOUTH EVERY DAY FOR 21 DAYS SWALLOW WHOLE WITH WATER, DO NOT BREAK, CHEW OR OPEN C
     Route: 048
     Dates: start: 20230608
  6. POMALYST [Suspect]
     Active Substance: POMALIDOMIDE
     Dosage: TAKE 1 CAPSULE BY MOUTH EVERY DAY FOR 21 DAYS SWALLOW WHOLE WITH WATER, DO NOT BREAK, CHEW OR OPEN C
     Route: 048
     Dates: start: 20230802, end: 20230823
  7. POMALYST [Suspect]
     Active Substance: POMALIDOMIDE
     Dosage: TAKE 1 CAPSULE BY MOUTH EVERY DAY FOR 21 DAYS SWALLOW WHOLE WITH WATER, DO NOT BREAK, CHEW OR OPEN C
     Route: 048
     Dates: start: 20230802, end: 20230828
  8. ALLOPURINOL [Concomitant]
     Active Substance: ALLOPURINOL
     Indication: Product used for unknown indication
  9. CALCIUM CARBONATE\VITAMIN D [Concomitant]
     Active Substance: CALCIUM CARBONATE\VITAMIN D
     Indication: Product used for unknown indication
     Dosage: 600 MG-5 MCG DAILY. TAKE 1 1/2 TABS TWO TIMES PER (200 UNIT) PER TABLET DAY (TO EQUAL 3 TABS DAILY)
     Route: 048
     Dates: start: 20230517
  10. HYDROCODONE BITARTRATE AND ACETAMINOPHEN [Concomitant]
     Active Substance: ACETAMINOPHEN\HYDROCODONE BITARTRATE
     Indication: Product used for unknown indication
     Dosage: 5-325MG
  11. SINGULAIR [Concomitant]
     Active Substance: MONTELUKAST SODIUM
     Indication: Product used for unknown indication
     Dosage: TAKE (10 MG TOTAL) BY MOUTH NIGHTLY. START THE DAY PRIOR TO FIRST DOSE OF DARATUMUMAB AND CONTINUE T
     Route: 048
     Dates: start: 20230324, end: 20230423
  12. LEVAQUIN [Concomitant]
     Active Substance: LEVOFLOXACIN
     Indication: Product used for unknown indication
     Dosage: TAKE 1 TABLET BY MOUTH DAILY FOR 10 DAYS
     Route: 048
     Dates: start: 20230811, end: 20230821
  13. LEVAQUIN [Concomitant]
     Active Substance: LEVOFLOXACIN
     Dosage: TAKE 1 TABLET BY MOUTH DAILY FOR 10 DAYS
     Route: 048
     Dates: start: 20230907, end: 20231007
  14. PREGABALIN [Concomitant]
     Active Substance: PREGABALIN
     Indication: Product used for unknown indication
  15. REVLIMID [Concomitant]
     Active Substance: LENALIDOMIDE
     Indication: Product used for unknown indication
  16. REVLIMID [Concomitant]
     Active Substance: LENALIDOMIDE
  17. REVLIMID [Concomitant]
     Active Substance: LENALIDOMIDE
  18. SYNTHROID [Concomitant]
     Active Substance: LEVOTHYROXINE SODIUM
     Indication: Product used for unknown indication
  19. ONDANSETRON [Concomitant]
     Active Substance: ONDANSETRON
     Indication: Product used for unknown indication
     Dosage: ODT
  20. DARZALEX FASPRO [Concomitant]
     Active Substance: DARATUMUMAB\HYALURONIDASE-FIHJ
     Indication: Plasma cell myeloma
     Dosage: ODT
     Route: 058
     Dates: start: 20230328
  21. DARZALEX FASPRO [Concomitant]
     Active Substance: DARATUMUMAB\HYALURONIDASE-FIHJ
     Dosage: DARZALEX FASPRO SOLUTION 1,800 MG, SUBCUTANEOUS, ONCE, 5 OF 12 CYCLES ADMINISTERED
     Route: 058
     Dates: start: 20230329
  22. DARZALEX FASPRO [Concomitant]
     Active Substance: DARATUMUMAB\HYALURONIDASE-FIHJ
     Dosage: DARZALEX FASPRO SOLUTION 1,800 MG, SUBCUTANEOUS, ONCE, 5 OF 12 CYCLES ADMINISTERED
     Route: 058
     Dates: start: 20230405
  23. DARZALEX FASPRO [Concomitant]
     Active Substance: DARATUMUMAB\HYALURONIDASE-FIHJ
     Dosage: DARZALEX FASPRO SOLUTION 1,800 MG, SUBCUTANEOUS, ONCE, 5 OF 12 CYCLES ADMINISTERED
     Route: 058
     Dates: start: 20230412
  24. DARZALEX FASPRO [Concomitant]
     Active Substance: DARATUMUMAB\HYALURONIDASE-FIHJ
     Dosage: DARZALEX FASPRO SOLUTION 1,800 MG, SUBCUTANEOUS, ONCE, 5 OF 12 CYCLES ADMINISTERED
     Route: 058
     Dates: start: 20230503
  25. DARZALEX FASPRO [Concomitant]
     Active Substance: DARATUMUMAB\HYALURONIDASE-FIHJ
     Dosage: DARZALEX FASPRO SOLUTION 1,800 MG, SUBCUTANEOUS, ONCE, 5 OF 12 CYCLES ADMINISTERED
     Route: 058
     Dates: start: 20230510
  26. DARZALEX FASPRO [Concomitant]
     Active Substance: DARATUMUMAB\HYALURONIDASE-FIHJ
     Dosage: DARZALEX FASPRO SOLUTION 1,800 MG, SUBCUTANEOUS, ONCE, 5 OF 12 CYCLES ADMINISTERED
     Route: 058
     Dates: start: 20230517
  27. DARZALEX FASPRO [Concomitant]
     Active Substance: DARATUMUMAB\HYALURONIDASE-FIHJ
     Dosage: DARZALEX FASPRO SOLUTION 1,800 MG, SUBCUTANEOUS, ONCE, 5 OF 12 CYCLES ADMINISTERED
     Route: 058
     Dates: start: 20230525
  28. DARZALEX FASPRO [Concomitant]
     Active Substance: DARATUMUMAB\HYALURONIDASE-FIHJ
     Dosage: DARZALEX FASPRO SOLUTION 1,800 MG, SUBCUTANEOUS, ONCE, 5 OF 12 CYCLES ADMINISTERED
     Route: 058
     Dates: start: 20230609
  29. DARZALEX FASPRO [Concomitant]
     Active Substance: DARATUMUMAB\HYALURONIDASE-FIHJ
     Dosage: DARZALEX FASPRO SOLUTION 1,800 MG, SUBCUTANEOUS, ONCE, 5 OF 12 CYCLES ADMINISTERED
     Route: 058
     Dates: start: 20230616
  30. DARZALEX FASPRO [Concomitant]
     Active Substance: DARATUMUMAB\HYALURONIDASE-FIHJ
     Dosage: DARZALEX FASPRO SOLUTION 1,800 MG, SUBCUTANEOUS, ONCE, 5 OF 12 CYCLES ADMINISTERED
     Route: 058
     Dates: start: 20230623
  31. DARZALEX FASPRO [Concomitant]
     Active Substance: DARATUMUMAB\HYALURONIDASE-FIHJ
     Dosage: DARZALEX FASPRO SOLUTION 1,800 MG, SUBCUTANEOUS, ONCE, 5 OF 12 CYCLES ADMINISTERED
     Route: 058
     Dates: start: 20230719
  32. DARZALEX FASPRO [Concomitant]
     Active Substance: DARATUMUMAB\HYALURONIDASE-FIHJ
     Dosage: DARZALEX FASPRO SOLUTION 1,800 MG, SUBCUTANEOUS, ONCE, 5 OF 12 CYCLES ADMINISTERED
     Route: 058
     Dates: start: 20230802
  33. DARZALEX FASPRO [Concomitant]
     Active Substance: DARATUMUMAB\HYALURONIDASE-FIHJ
     Dosage: DARZALEX FASPRO SOLUTION 1,800 MG, SUBCUTANEOUS, ONCE, 5 OF 12 CYCLES ADMINISTERED
     Route: 058
     Dates: start: 20230817
  34. DARZALEX FASPRO [Concomitant]
     Active Substance: DARATUMUMAB\HYALURONIDASE-FIHJ
     Dosage: DARZALEX FASPRO SOLUTION 1,800 MG, SUBCUTANEOUS, ONCE, 5 OF 12 CYCLES ADMINISTERED
     Route: 058
     Dates: start: 20230830
  35. DECADRON [Concomitant]
     Active Substance: DEXAMETHASONE
     Indication: Plasma cell myeloma
     Dates: start: 20230328
  36. DECADRON [Concomitant]
     Active Substance: DEXAMETHASONE
     Dosage: TAKE 5 TABLETS (20 MG TOTAL) BY MOUTH DAILY WITH BREAKFAST, PRIOR TO EACH DARZALEX INFUSION, TAKE 5
     Route: 048
     Dates: start: 20230706, end: 20230805
  37. SYNTHROID [Concomitant]
     Active Substance: LEVOTHYROXINE SODIUM
     Indication: Product used for unknown indication
     Dosage: 25 MCG TABLET (25 MCG TOTAL) BYMOUTH DAILY
     Route: 048
  38. EMLA [Concomitant]
     Active Substance: LIDOCAINE\PRILOCAINE
     Indication: Product used for unknown indication
     Dosage: 1 APPLICATION TOPICALLY DAILY AS NEEDED (PORT ACCESS). APPLY DIME SIZED AMOUNT TO PORT SITE AND COVE
     Route: 061
     Dates: start: 20230324
  39. MAGNESIUM OXIDE [Concomitant]
     Active Substance: MAGNESIUM OXIDE
     Indication: Product used for unknown indication
     Dosage: TAKE ONE TABLET BY MOUTH DAILY
     Route: 048
     Dates: start: 20230706
  40. MAGNESIUM OXIDE [Concomitant]
     Active Substance: MAGNESIUM OXIDE
     Dosage: TAKE ONE TABLET BY MOUTH DAILY
     Route: 048
     Dates: start: 20230905
  41. ZOFRAN [Concomitant]
     Active Substance: ONDANSETRON HYDROCHLORIDE
     Indication: Nausea
     Dosage: PLACE 2 (TWO) TABLETS UNDER THE TONGUE EVERY 8 (EIGHT) HOURS AS NEEDED FOR NAUSEA OR VOMITING
     Route: 060
     Dates: start: 20230324
  42. ZOFRAN [Concomitant]
     Active Substance: ONDANSETRON HYDROCHLORIDE
     Indication: Vomiting
  43. ROXICODONE [Concomitant]
     Active Substance: OXYCODONE HYDROCHLORIDE
     Indication: Pain
     Dosage: IMMEDIATE RELEASE TABLET (5-10 MG TOTAL) BY MOUTH EVERY 6(SIX) HOURS AS NEEDED FOR MODERATE PAIN OR
     Route: 048
     Dates: start: 20230706
  44. ROXICODONE [Concomitant]
     Active Substance: OXYCODONE HYDROCHLORIDE
     Dosage: IMMEDIATE RELEASE TABLET (5-10 MG TOTAL) BY MOUTH EVERY 6(SIX) HOURS AS NEEDED FOR MODERATE PAIN OR
     Route: 048
     Dates: start: 20230815, end: 20230925
  45. ROXICODONE [Concomitant]
     Active Substance: OXYCODONE HYDROCHLORIDE
     Dosage: IMMEDIATE RELEASE TABLET (5-10 MG TOTAL) BY MOUTH EVERY 6(SIX) HOURS AS NEEDED FOR MODERATE PAIN OR
     Route: 048
     Dates: start: 20230925
  46. KLOR-CON M20 [Concomitant]
     Active Substance: POTASSIUM CHLORIDE
     Indication: Product used for unknown indication
     Dosage: 20 MEQ CR MOUTH ONCE DALLY TABLET.
     Route: 048
     Dates: start: 20211022
  47. LYRICA [Concomitant]
     Active Substance: PREGABALIN
     Indication: Product used for unknown indication
     Dosage: TAKE 1 (ONE) CAPSULE (50 MG TOTAL) BY MOUTH 3 TIMES A DAY.
     Route: 048
     Dates: start: 20230525, end: 20230828
  48. LYRICA [Concomitant]
     Active Substance: PREGABALIN
     Dosage: TAKE 1 (ONE) CAPSULE (50 MG TOTAL) BY MOUTH 3 TIMES A DAY.
     Route: 048
     Dates: start: 20230828, end: 20230828
  49. LYRICA [Concomitant]
     Active Substance: PREGABALIN
     Dosage: TAKE 1 (ONE) CAPSULE (50 MG TOTAL) BY MOUTH 3 TIMES A DAY.
     Route: 048
     Dates: start: 20230921, end: 20231023
  50. LYRICA [Concomitant]
     Active Substance: PREGABALIN
     Dosage: TAKE 1 (ONE) CAPSULE (50 MG TOTAL) BY MOUTH 3 TIMES A DAY.
     Route: 048
     Dates: start: 20231023
  51. COMPAZINE [Concomitant]
     Active Substance: PROCHLORPERAZINE MALEATE
     Indication: Nausea
     Dosage: TAKE 1 TABLET MOUTH EVERY 6 HOURS AS NEEDED FOR NAUSEA OR VOMITING
     Route: 048
     Dates: start: 20230324
  52. COMPAZINE [Concomitant]
     Active Substance: PROCHLORPERAZINE MALEATE
     Indication: Vomiting
  53. BACTRIM DS [Concomitant]
     Active Substance: SULFAMETHOXAZOLE\TRIMETHOPRIM
     Indication: Infection prophylaxis
     Dosage: 800-160 MG PER TABLET, TAKE 1 TABLET MOUTH 3 TIMES A WEEK
     Route: 048
     Dates: start: 20230719
  54. BACTRIM DS [Concomitant]
     Active Substance: SULFAMETHOXAZOLE\TRIMETHOPRIM
     Dosage: 800-160 MG PER TABLET, TAKE 1 TABLET MOUTH 3 TIMES A WEEK
     Route: 048
     Dates: start: 20230426, end: 20230719
  55. ZOVIRAX [Concomitant]
     Active Substance: ACYCLOVIR
     Indication: Infection prophylaxis
     Dosage: TAKE 1 TABLET BY MOUTH THREE TIMES A DAY
     Route: 048
     Dates: start: 20230706
  56. ZOMETA [Concomitant]
     Active Substance: ZOLEDRONIC ACID
     Indication: Metastases to bone
     Dosage: ZOLEDRONIC ACID (ZOMETA) 4 MG IN SODIUM CHLORIDE 0.9 % 100 ML, IVPB, 4 MG, INTRAVENOUS, ONCE, 23 OF
     Route: 042
     Dates: start: 20210920
  57. ZOMETA [Concomitant]
     Active Substance: ZOLEDRONIC ACID
     Dosage: ZOLEDRONIC ACID (ZOMETA) 4 MG IN SODIUM CHLORIDE 0.9 % 100 ML, IVPB, 4 MG, INTRAVENOUS, ONCE, 23 OF
     Route: 042
     Dates: start: 20211018
  58. ZOMETA [Concomitant]
     Active Substance: ZOLEDRONIC ACID
     Dosage: ZOLEDRONIC ACID (ZOMETA) 4 MG IN SODIUM CHLORIDE 0.9 % 100 ML, IVPB, 4 MG, INTRAVENOUS, ONCE, 23 OF
     Route: 042
     Dates: start: 20211122
  59. ZOMETA [Concomitant]
     Active Substance: ZOLEDRONIC ACID
     Dosage: ZOLEDRONIC ACID (ZOMETA) 4 MG IN SODIUM CHLORIDE 0.9 % 100 ML, IVPB, 4 MG, INTRAVENOUS, ONCE, 23 OF
     Route: 042
     Dates: start: 20211220
  60. ZOMETA [Concomitant]
     Active Substance: ZOLEDRONIC ACID
     Dosage: ZOLEDRONIC ACID (ZOMETA) 4 MG IN SODIUM CHLORIDE 0.9 % 100 ML, IVPB, 4 MG, INTRAVENOUS, ONCE, 23 OF
     Route: 042
     Dates: start: 20220121
  61. ZOMETA [Concomitant]
     Active Substance: ZOLEDRONIC ACID
     Dosage: ZOLEDRONIC ACID (ZOMETA) 4 MG IN SODIUM CHLORIDE 0.9 % 100 ML, IVPB, 4 MG, INTRAVENOUS, ONCE, 23 OF
     Route: 042
     Dates: start: 20220218
  62. ZOMETA [Concomitant]
     Active Substance: ZOLEDRONIC ACID
     Dosage: ZOLEDRONIC ACID (ZOMETA) 4 MG IN SODIUM CHLORIDE 0.9 % 100 ML, IVPB, 4 MG, INTRAVENOUS, ONCE, 23 OF
     Route: 042
     Dates: start: 20220318
  63. ZOMETA [Concomitant]
     Active Substance: ZOLEDRONIC ACID
     Dosage: ZOLEDRONIC ACID (ZOMETA) 4 MG IN SODIUM CHLORIDE 0.9 % 100 ML, IVPB, 4 MG, INTRAVENOUS, ONCE, 23 OF
     Route: 042
     Dates: start: 20220415
  64. ZOMETA [Concomitant]
     Active Substance: ZOLEDRONIC ACID
     Dosage: ZOLEDRONIC ACID (ZOMETA) 4 MG IN SODIUM CHLORIDE 0.9 % 100 ML, IVPB, 4 MG, INTRAVENOUS, ONCE, 23 OF
     Route: 042
     Dates: start: 20220513
  65. ZOMETA [Concomitant]
     Active Substance: ZOLEDRONIC ACID
     Dosage: ZOLEDRONIC ACID (ZOMETA) 4 MG IN SODIUM CHLORIDE 0.9 % 100 ML, IVPB, 4 MG, INTRAVENOUS, ONCE, 23 OF
     Route: 042
     Dates: start: 20220627
  66. ZOMETA [Concomitant]
     Active Substance: ZOLEDRONIC ACID
     Dosage: ZOLEDRONIC ACID (ZOMETA) 4 MG IN SODIUM CHLORIDE 0.9 % 100 ML, IVPB, 4 MG, INTRAVENOUS, ONCE, 23 OF
     Route: 042
     Dates: start: 20220811
  67. ZOMETA [Concomitant]
     Active Substance: ZOLEDRONIC ACID
     Dosage: ZOLEDRONIC ACID (ZOMETA) 4 MG IN SODIUM CHLORIDE 0.9 % 100 ML, IVPB, 4 MG, INTRAVENOUS, ONCE, 23 OF
     Route: 042
     Dates: start: 20220908
  68. ZOMETA [Concomitant]
     Active Substance: ZOLEDRONIC ACID
     Dosage: ZOLEDRONIC ACID (ZOMETA) 4 MG IN SODIUM CHLORIDE 0.9 % 100 ML, IVPB, 4 MG, INTRAVENOUS, ONCE, 23 OF
     Route: 042
     Dates: start: 20221006
  69. ZOMETA [Concomitant]
     Active Substance: ZOLEDRONIC ACID
     Dosage: ZOLEDRONIC ACID (ZOMETA) 4 MG IN SODIUM CHLORIDE 0.9 % 100 ML, IVPB, 4 MG, INTRAVENOUS, ONCE, 23 OF
     Route: 042
     Dates: start: 20221110
  70. ZOMETA [Concomitant]
     Active Substance: ZOLEDRONIC ACID
     Dosage: ZOLEDRONIC ACID (ZOMETA) 4 MG IN SODIUM CHLORIDE 0.9 % 100 ML, IVPB, 4 MG, INTRAVENOUS, ONCE, 23 OF
     Route: 042
     Dates: start: 20221208
  71. ZOMETA [Concomitant]
     Active Substance: ZOLEDRONIC ACID
     Dosage: ZOLEDRONIC ACID (ZOMETA) 4 MG IN SODIUM CHLORIDE 0.9 % 100 ML, IVPB, 4 MG, INTRAVENOUS, ONCE, 23 OF
     Route: 042
     Dates: start: 20230112
  72. ZOMETA [Concomitant]
     Active Substance: ZOLEDRONIC ACID
     Dosage: ZOLEDRONIC ACID (ZOMETA) 4 MG IN SODIUM CHLORIDE 0.9 % 100 ML, IVPB, 4 MG, INTRAVENOUS, ONCE, 23 OF
     Route: 042
     Dates: start: 20230213
  73. ZOMETA [Concomitant]
     Active Substance: ZOLEDRONIC ACID
     Dosage: ZOLEDRONIC ACID (ZOMETA) 4 MG IN SODIUM CHLORIDE 0.9 % 100 ML, IVPB, 4 MG, INTRAVENOUS, ONCE, 23 OF
     Route: 042
     Dates: start: 20230313
  74. ZOMETA [Concomitant]
     Active Substance: ZOLEDRONIC ACID
     Dosage: ZOLEDRONIC ACID (ZOMETA) 4 MG IN SODIUM CHLORIDE 0.9 % 100 ML, IVPB, 4 MG, INTRAVENOUS, ONCE, 23 OF
     Route: 042
     Dates: start: 20230412
  75. ZOMETA [Concomitant]
     Active Substance: ZOLEDRONIC ACID
     Dosage: ZOLEDRONIC ACID (ZOMETA) 4 MG IN SODIUM CHLORIDE 0.9 % 100 ML, IVPB, 4 MG, INTRAVENOUS, ONCE, 23 OF
     Route: 042
     Dates: start: 20230510
  76. ZOMETA [Concomitant]
     Active Substance: ZOLEDRONIC ACID
     Dosage: ZOLEDRONIC ACID (ZOMETA) 4 MG IN SODIUM CHLORIDE 0.9 % 100 ML, IVPB, 4 MG, INTRAVENOUS, ONCE, 23 OF
     Route: 042
     Dates: start: 20230616
  77. ZOMETA [Concomitant]
     Active Substance: ZOLEDRONIC ACID
     Dosage: ZOLEDRONIC ACID (ZOMETA) 4 MG IN SODIUM CHLORIDE 0.9 % 100 ML, IVPB, 4 MG, INTRAVENOUS, ONCE, 23 OF
     Route: 042
     Dates: start: 20230719
  78. ZOMETA [Concomitant]
     Active Substance: ZOLEDRONIC ACID
     Dosage: ZOLEDRONIC ACID (ZOMETA) 4 MG IN SODIUM CHLORIDE 0.9 % 100 ML, IVPB, 4 MG, INTRAVENOUS, ONCE, 23 OF
     Route: 042
     Dates: start: 20230817
  79. ZOMETA [Concomitant]
     Active Substance: ZOLEDRONIC ACID
     Dates: start: 20230817
  80. VELCADE [Concomitant]
     Active Substance: BORTEZOMIB
     Indication: Plasma cell myeloma
     Dosage: TAKE 1 TABLET BY MOUTH THREE TIMES A DAY
     Route: 048
     Dates: start: 20210111

REACTIONS (5)
  - Neutropenia [Recovering/Resolving]
  - White blood cell count decreased [Unknown]
  - Hypomagnesaemia [Unknown]
  - Full blood count decreased [Unknown]
  - Vitamin B12 deficiency [Unknown]

NARRATIVE: CASE EVENT DATE: 20230401
